FAERS Safety Report 23255687 (Version 1)
Quarter: 2023Q4

REPORT INFORMATION
  Report Type: Spontaneous
  Country: CN (occurrence: CN)
  Receive Date: 20231204
  Receipt Date: 20231204
  Transmission Date: 20240109
  Serious: Yes (Other)
  Sender: FDA-Public Use
  Company Number: None

PATIENT
  Age: 37 Year
  Sex: Female

DRUGS (2)
  1. MANNITOL [Suspect]
     Active Substance: MANNITOL
     Indication: Swelling
     Dosage: 250 ML ONCE DAILY (DOSAGE FORM: FLUID, ROUTE OF ADMISTRATION: INJECTION)
     Route: 041
     Dates: start: 20231124, end: 20231124
  2. MANNITOL [Suspect]
     Active Substance: MANNITOL
     Indication: Analgesic therapy

REACTIONS (2)
  - Pruritus [Recovered/Resolved]
  - Discomfort [Recovered/Resolved]

NARRATIVE: CASE EVENT DATE: 20231124
